FAERS Safety Report 24887337 (Version 1)
Quarter: 2025Q1

REPORT INFORMATION
  Report Type: Spontaneous
  Country: CN (occurrence: CN)
  Receive Date: 20250127
  Receipt Date: 20250127
  Transmission Date: 20250409
  Serious: Yes (Life-Threatening, Hospitalization, Disabling, Other)
  Sender: DR REDDYS
  Company Number: None

PATIENT
  Age: 77 Year
  Sex: Female
  Weight: 45.2 kg

DRUGS (3)
  1. CLOPIDOGREL BISULFATE [Suspect]
     Active Substance: CLOPIDOGREL BISULFATE
     Indication: Coronary arterial stent insertion
     Dosage: 75MG,QD
     Route: 048
     Dates: start: 20240416, end: 20250116
  2. ASPIRIN [Suspect]
     Active Substance: ASPIRIN
     Indication: Coronary arterial stent insertion
     Dosage: ASPIRIN ENTERIC-COATED TABLETS 100MG,QD
     Route: 048
     Dates: start: 20240416, end: 20250116
  3. PANTOPRAZOLE SODIUM [Concomitant]
     Active Substance: PANTOPRAZOLE SODIUM
     Indication: Dyspepsia
     Dosage: 40MG,QD
     Route: 048
     Dates: start: 20240416, end: 20250116

REACTIONS (10)
  - Upper gastrointestinal haemorrhage [Recovering/Resolving]
  - Dizziness [Recovering/Resolving]
  - Nausea [Recovering/Resolving]
  - Vomiting [Recovering/Resolving]
  - Haematemesis [Recovering/Resolving]
  - Diarrhoea [Recovering/Resolving]
  - Melaena [Recovering/Resolving]
  - Abdominal pain [Recovering/Resolving]
  - Gastrooesophageal reflux disease [Recovering/Resolving]
  - Haemoglobin decreased [Recovering/Resolving]

NARRATIVE: CASE EVENT DATE: 20250116
